FAERS Safety Report 9536953 (Version 2)
Quarter: 2013Q4

REPORT INFORMATION
  Report Type: Spontaneous
  Country: US (occurrence: US)
  Receive Date: 20130919
  Receipt Date: 20131224
  Transmission Date: 20140711
  Serious: Yes (Other)
  Sender: FDA-Public Use
  Company Number: US-SANOFI-AVENTIS-2013SA091625

PATIENT
  Age: 57 Year
  Sex: Male
  Weight: 83.9 kg

DRUGS (9)
  1. FABRAZYME [Suspect]
     Indication: FABRY^S DISEASE
     Route: 042
     Dates: start: 20130621, end: 20130927
  2. FABRAZYME [Suspect]
     Indication: FABRY^S DISEASE
     Route: 042
     Dates: start: 20130621, end: 20130927
  3. TYLENOL [Concomitant]
     Indication: PREMEDICATION
     Dates: start: 20130621, end: 20130913
  4. ASPIRIN [Concomitant]
     Indication: PROPHYLAXIS
     Dosage: BABY ASPIRIN
     Dates: start: 20130520
  5. DIPHENHYDRAMINE [Concomitant]
     Indication: PREMEDICATION
     Route: 048
     Dates: start: 20130621, end: 20130913
  6. DIPHENHYDRAMINE [Concomitant]
     Indication: HYPERSENSITIVITY
     Route: 048
     Dates: start: 20130621, end: 20130913
  7. DIPHENHYDRAMINE [Concomitant]
     Indication: PREMEDICATION
     Route: 042
     Dates: start: 20130913, end: 20130913
  8. DIPHENHYDRAMINE [Concomitant]
     Indication: HYPERSENSITIVITY
     Route: 042
     Dates: start: 20130913, end: 20130913
  9. SOLUMEDROL [Concomitant]
     Indication: PREMEDICATION
     Route: 042
     Dates: start: 20130621, end: 20130913

REACTIONS (4)
  - Cold sweat [Recovered/Resolved]
  - Nausea [Recovered/Resolved]
  - Chills [Recovered/Resolved]
  - Nasopharyngitis [Recovered/Resolved]
